FAERS Safety Report 23539786 (Version 1)
Quarter: 2024Q1

REPORT INFORMATION
  Report Type: Spontaneous
  Country: FI (occurrence: FI)
  Receive Date: 20240219
  Receipt Date: 20240219
  Transmission Date: 20240410
  Serious: Yes (Hospitalization)
  Sender: FDA-Public Use
  Company Number: None

PATIENT
  Age: 15 Year
  Sex: Female

DRUGS (1)
  1. OLANZAPINE [Suspect]
     Active Substance: OLANZAPINE
     Indication: Anxiety
     Dosage: 1-2 TABLETS (2.5-5MG) IF NECESSARY 1-3 TIMES A DAY
     Route: 048
     Dates: start: 202312

REACTIONS (3)
  - Head banging [Not Recovered/Not Resolved]
  - Aggression [Not Recovered/Not Resolved]
  - Self-destructive behaviour [Not Recovered/Not Resolved]

NARRATIVE: CASE EVENT DATE: 20231201
